FAERS Safety Report 7932793-0 (Version None)
Quarter: 2011Q4

REPORT INFORMATION
  Report Type: 
  Country: None (occurrence: None)
  Receive Date: 20111122
  Receipt Date: 20111114
  Transmission Date: 20120403
  Serious: Yes (Other)
  Sender: FDA-Public Use
  Company Number: US-UCBSA-044034

PATIENT
  Age: 65 Year
  Sex: Male
  Weight: 87.72 kg

DRUGS (2)
  1. CIMZIA [Suspect]
     Indication: RHEUMATOID ARTHRITIS
     Dosage: 200 MG AT 0,2, 4 WEEKS AND Q4 WEEKS
     Route: 058
     Dates: start: 20110801, end: 20110901
  2. METHOTREXATE [Concomitant]
     Indication: RHEUMATOID ARTHRITIS
     Dosage: DOSE PER INTAKE: 2.5 MG; 17.5 MG/WEEK

REACTIONS (2)
  - RHEUMATOID ARTHRITIS [None]
  - PUSTULAR PSORIASIS [None]
